FAERS Safety Report 7940376-1 (Version None)
Quarter: 2011Q4

REPORT INFORMATION
  Report Type: 
  Country: None (occurrence: None)
  Receive Date: 20111127
  Receipt Date: 20101108
  Transmission Date: 20120403
  Serious: No
  Sender: FDA-Public Use
  Company Number: US-ALLERGAN-1014415US

PATIENT
  Age: 75 Year
  Sex: Female

DRUGS (2)
  1. ELESTAT [Suspect]
     Indication: EYE PRURITUS
     Dosage: 1 GTT, BID
     Route: 047
     Dates: start: 20100701, end: 20101117
  2. ELESTAT [Suspect]
     Indication: DRY EYE

REACTIONS (4)
  - EYE PRURITUS [None]
  - EYE IRRITATION [None]
  - HALO VISION [None]
  - VISUAL ACUITY REDUCED [None]
